FAERS Safety Report 11212772 (Version 4)
Quarter: 2015Q3

REPORT INFORMATION
  Report Type: Spontaneous
  Country: US (occurrence: US)
  Receive Date: 20150623
  Receipt Date: 20150928
  Transmission Date: 20151125
  Serious: No
  Sender: FDA-Public Use
  Company Number: US-PFIZER INC-2015205959

PATIENT
  Age: 34 Year
  Sex: Female
  Weight: 82 kg

DRUGS (7)
  1. HYDROXYZINE [Concomitant]
     Active Substance: HYDROXYZINE\HYDROXYZINE HYDROCHLORIDE
     Indication: HYPERSENSITIVITY
  2. NEURONTIN [Suspect]
     Active Substance: GABAPENTIN
     Indication: BACK INJURY
  3. HYDROXYZINE [Concomitant]
     Active Substance: HYDROXYZINE\HYDROXYZINE HYDROCHLORIDE
     Indication: ANXIETY
     Dosage: UNK, AS NEEDED
  4. NEURONTIN [Suspect]
     Active Substance: GABAPENTIN
     Indication: BACK INJURY
     Dosage: 200 MG, 2X/DAY
     Route: 048
     Dates: start: 20150309
  5. NEURONTIN [Suspect]
     Active Substance: GABAPENTIN
     Indication: FIBROMYALGIA
     Dosage: 100 MG, 3X/DAY
     Route: 048
     Dates: end: 20150408
  6. LYRICA [Concomitant]
     Active Substance: PREGABALIN
     Dosage: UNK
  7. NEURONTIN [Suspect]
     Active Substance: GABAPENTIN
     Indication: MYALGIA

REACTIONS (11)
  - Thinking abnormal [Unknown]
  - Drug ineffective for unapproved indication [Unknown]
  - Visual perseveration [Unknown]
  - Dizziness [Recovered/Resolved]
  - Drug hypersensitivity [Unknown]
  - Sedation [Recovered/Resolved]
  - Headache [Unknown]
  - Feeling drunk [Unknown]
  - Motion sickness [Unknown]
  - Abdominal distension [Unknown]
  - Swelling [Unknown]

NARRATIVE: CASE EVENT DATE: 20150309
